FAERS Safety Report 7059517-6 (Version None)
Quarter: 2010Q4

REPORT INFORMATION
  Report Type: 
  Country: None (occurrence: None)
  Receive Date: 20101025
  Receipt Date: 20101011
  Transmission Date: 20110411
  Serious: Yes (Hospitalization)
  Sender: FDA-Public Use
  Company Number: US-JNJFOC-20101003378

PATIENT
  Sex: Male
  Weight: 22.6 kg

DRUGS (3)
  1. BLINDED; INFLIXIMAB, RECOMBINANT [Suspect]
     Indication: KAWASAKI'S DISEASE
     Route: 042
  2. PLACEBO [Suspect]
     Indication: KAWASAKI'S DISEASE
     Route: 042
  3. IMMU-G [Concomitant]
     Route: 042

REACTIONS (4)
  - HEADACHE [None]
  - HYPERSENSITIVITY [None]
  - PHOTOPHOBIA [None]
  - VOMITING [None]
